FAERS Safety Report 5603707-3 (Version None)
Quarter: 2008Q1

REPORT INFORMATION
  Report Type: 
  Country: None (occurrence: None)
  Receive Date: 20080128
  Receipt Date: 20071127
  Transmission Date: 20080703
  Serious: Yes (Other)
  Sender: FDA-Public Use
  Company Number: IN-BAYER-200810263GPV

PATIENT
  Age: 8 Year
  Sex: Male
  Weight: 19 kg

DRUGS (2)
  1. ASPIRIN [Suspect]
     Indication: PYREXIA
  2. PENICILLIN [Concomitant]
     Indication: INFLAMMATION

REACTIONS (5)
  - BLOOD BILIRUBIN INCREASED [None]
  - HAEMOGLOBIN DECREASED [None]
  - HAEMOLYTIC ANAEMIA [None]
  - HEMIPARESIS [None]
  - RETICULOCYTOSIS [None]
